FAERS Safety Report 5764051-7 (Version None)
Quarter: 2008Q2

REPORT INFORMATION
  Report Type: 
  Country: None (occurrence: None)
  Receive Date: 20080606
  Receipt Date: 20080606
  Transmission Date: 20081010
  Serious: Yes (Other)
  Sender: FDA-Public Use
  Company Number: None

PATIENT
  Age: 57 Year
  Sex: Female
  Weight: 44.4525 kg

DRUGS (1)
  1. LEVAQUIN [Suspect]
     Indication: ABSCESS
     Dosage: 500 MG 1/DAY ORAL
     Route: 048
     Dates: start: 20071029, end: 20071220

REACTIONS (1)
  - NEUROPATHY PERIPHERAL [None]
